FAERS Safety Report 8986205 (Version 1)
Quarter: 2012Q4

REPORT INFORMATION
  Report Type: Spontaneous
  Country: US (occurrence: None)
  Receive Date: 20121219
  Receipt Date: 20121219
  Transmission Date: 20130627
  Serious: Yes (Life-Threatening, Hospitalization)
  Sender: FDA-Public Use
  Company Number: None

PATIENT
  Age: 56 Year
  Sex: Male
  Weight: 93 kg

DRUGS (2)
  1. PLAVIX [Suspect]
     Indication: AORTIC VALVE REPLACEMENT
  2. ACETYLSALICYLIC ACID [Suspect]
     Dosage: 162mg BID po
     Route: 048

REACTIONS (6)
  - Alcohol use [None]
  - Fall [None]
  - Head injury [None]
  - Subdural haematoma [None]
  - Cerebral haemorrhage [None]
  - Subarachnoid haemorrhage [None]
